FAERS Safety Report 10704854 (Version 1)
Quarter: 2014Q4

REPORT INFORMATION
  Report Type: Spontaneous
  Country: US (occurrence: US)
  Receive Date: 20141126
  Receipt Date: 20141126
  Transmission Date: 20150529
  Serious: Yes (Other)
  Sender: FDA-Public Use
  Company Number: US-APOTEX-2014AP005910

PATIENT
  Age: 45 Year
  Sex: Male

DRUGS (3)
  1. CRANBERRY. [Suspect]
     Active Substance: CRANBERRY
     Indication: HIGH DENSITY LIPOPROTEIN DECREASED
     Dosage: 16 OUNCES PER DAY
     Route: 048
  2. ATORVASTATIN CALCIUM. [Suspect]
     Active Substance: ATORVASTATIN CALCIUM
     Indication: HYPERLIPIDAEMIA
     Dosage: UNK
     Route: 065
  3. LISINOPRIL, HYDROCHLOROTHIAZIDE [Concomitant]
     Indication: PRODUCT USED FOR UNKNOWN INDICATION
     Dosage: LISINOPRIL/HYDROCHLOROTHIAZIDE 20/25
     Route: 065

REACTIONS (3)
  - Food interaction [Recovered/Resolved]
  - Rhabdomyolysis [Recovered/Resolved]
  - Hepatitis [Recovered/Resolved]
